FAERS Safety Report 13583073 (Version 1)
Quarter: 2017Q2

REPORT INFORMATION
  Report Type: Report from Study
  Country: PL (occurrence: PL)
  Receive Date: 20170525
  Receipt Date: 20170525
  Transmission Date: 20170830
  Serious: Yes (Hospitalization, Other)
  Sender: FDA-Public Use
  Company Number: PL-TAKEDA-2017TUS011313

PATIENT
  Age: 26 Year
  Sex: Female
  Weight: 64.2 kg

DRUGS (3)
  1. FEROPLEX [Concomitant]
     Indication: ANAEMIA PROPHYLAXIS
     Dosage: UNK, QD
     Route: 048
     Dates: start: 20160125
  2. VEDOLIZUMAB [Suspect]
     Active Substance: VEDOLIZUMAB
     Indication: CROHN^S DISEASE
     Dosage: UNK, Q2WEEKS
     Route: 058
     Dates: start: 20170104
  3. PENTASA [Concomitant]
     Active Substance: MESALAMINE
     Indication: CROHN^S DISEASE
     Dosage: 1 G, BID
     Route: 048
     Dates: start: 20140127

REACTIONS (1)
  - Renal failure [Not Recovered/Not Resolved]

NARRATIVE: CASE EVENT DATE: 20170426
